FAERS Safety Report 25080846 (Version 1)
Quarter: 2025Q1

REPORT INFORMATION
  Report Type: Spontaneous
  Country: DE (occurrence: DE)
  Receive Date: 20250315
  Receipt Date: 20250315
  Transmission Date: 20250408
  Serious: Yes (Other)
  Sender: AUROBINDO
  Company Number: DE-Desitin-2025-00401

PATIENT
  Sex: Male

DRUGS (9)
  1. LEVETIRACETAM [Suspect]
     Active Substance: LEVETIRACETAM
     Indication: Seizure
     Route: 065
  2. VALPROATE SODIUM [Suspect]
     Active Substance: VALPROATE SODIUM
     Indication: Seizure
     Dosage: 1 DOSAGE FORM, TWO TIMES A DAY
     Route: 065
  3. VALPROIC ACID [Suspect]
     Active Substance: VALPROIC ACID
     Indication: Seizure
     Dosage: 500 MILLIGRAM, TWO TIMES A DAY
     Route: 065
  4. OXCARBAZEPINE [Suspect]
     Active Substance: OXCARBAZEPINE
     Indication: Seizure
     Dosage: 600 MILLIGRAM, TWO TIMES A DAY
     Route: 065
  5. OXCARBAZEPINE [Suspect]
     Active Substance: OXCARBAZEPINE
     Dosage: 1800 MILLIGRAM, ONCE A DAY (1-0-2)
     Route: 065
  6. LEVETIRACETAM [Suspect]
     Active Substance: LEVETIRACETAM
     Indication: Seizure
     Dosage: 500 MILLIGRAM, TWO TIMES A DAY
     Route: 065
  7. LEVETIRACETAM [Suspect]
     Active Substance: LEVETIRACETAM
     Dosage: 1500 MILLIGRAM, ONCE A DAY (1-0-2)
     Route: 065
  8. LEVOTHYROXINE SODIUM [Concomitant]
     Active Substance: LEVOTHYROXINE SODIUM
     Indication: Hypothyroidism
     Route: 065
  9. ACETAMINOPHEN [Concomitant]
     Active Substance: ACETAMINOPHEN
     Indication: Influenza like illness
     Route: 065

REACTIONS (5)
  - Seizure [Unknown]
  - Therapeutic product effect incomplete [Unknown]
  - Malaise [Recovered/Resolved]
  - White blood cell count decreased [Unknown]
  - Product complaint [Unknown]
